FAERS Safety Report 13372334 (Version 1)
Quarter: 2017Q1

REPORT INFORMATION
  Report Type: Spontaneous
  Country: US (occurrence: US)
  Receive Date: 20170327
  Receipt Date: 20170327
  Transmission Date: 20170429
  Serious: No
  Sender: FDA-Public Use
  Company Number: US-INTERPRAG-PM-OCA2017-00035

PATIENT

DRUGS (1)
  1. OCALIVA [Suspect]
     Active Substance: OBETICHOLIC ACID
     Indication: HEPATIC CIRRHOSIS
     Dosage: 10 MG, QD
     Route: 048
     Dates: start: 20160701

REACTIONS (2)
  - Product use issue [Unknown]
  - Blood alkaline phosphatase increased [Unknown]
